FAERS Safety Report 9868464 (Version 1)
Quarter: 2014Q1

REPORT INFORMATION
  Report Type: Report from Study
  Country: US (occurrence: US)
  Receive Date: 20140204
  Receipt Date: 20140204
  Transmission Date: 20141002
  Serious: Yes (Other)
  Sender: FDA-Public Use
  Company Number: US-PURDUE-USA-2014-0110793

PATIENT
  Sex: Male

DRUGS (2)
  1. OXY CR TAB [Suspect]
     Indication: PROSTATE CANCER
     Dosage: 40 MG, BID
     Route: 048
  2. OXY CR TAB [Suspect]
     Dosage: 60 MG, BID
     Route: 048

REACTIONS (1)
  - Bone cancer metastatic [Unknown]
